FAERS Safety Report 9165163 (Version 1)
Quarter: 2013Q1

REPORT INFORMATION
  Report Type: Spontaneous
  Country: CA (occurrence: CA)
  Receive Date: 20130315
  Receipt Date: 20130315
  Transmission Date: 20140127
  Serious: Yes (Death)
  Sender: FDA-Public Use
  Company Number: CA-ELI_LILLY_AND_COMPANY-CA201303002046

PATIENT
  Age: 48 Year
  Sex: Female

DRUGS (20)
  1. FORTEO [Suspect]
     Indication: OSTEOPOROSIS
     Dosage: 20 UG, QD
     Route: 058
     Dates: start: 20120721
  2. ADVAIR [Concomitant]
  3. WELLBUTRIN XL [Concomitant]
  4. TRACLEER [Concomitant]
  5. CLONAZEPAM [Concomitant]
  6. HYDROXYZINE [Concomitant]
  7. ACETAMINOPHEN [Concomitant]
  8. REVATIO [Concomitant]
  9. K-DUR [Concomitant]
  10. VITAMIN D NOS [Concomitant]
  11. ITRACONAZOL [Concomitant]
  12. PREDNISONE [Concomitant]
  13. METFORMIN [Concomitant]
  14. ABILIFY [Concomitant]
  15. OXYCOCET [Concomitant]
  16. PANTOPRAZOLE [Concomitant]
  17. FENTANYL [Concomitant]
  18. DOCUSATE SODIUM [Concomitant]
  19. LASIX [Concomitant]
  20. VENTOLIN                                /SCH/ [Concomitant]

REACTIONS (1)
  - Death [Fatal]
